FAERS Safety Report 8272330-7 (Version None)
Quarter: 2012Q2

REPORT INFORMATION
  Report Type: 
  Country: None (occurrence: None)
  Receive Date: 20120410
  Receipt Date: 20120329
  Transmission Date: 20120825
  Serious: No
  Sender: FDA-Public Use
  Company Number: US-B.I. PHARMACEUTICALS,INC./RIDGEFIELD-2012-BP-05954BP

PATIENT
  Sex: Male

DRUGS (2)
  1. ZANTAC 75 [Suspect]
     Indication: DYSPEPSIA
     Dosage: 75 MG
     Route: 048
     Dates: start: 20120328, end: 20120329
  2. PROTON PUMP INHIBITOR [Concomitant]

REACTIONS (6)
  - HAEMATEMESIS [None]
  - PRURITUS GENERALISED [None]
  - CHEST PAIN [None]
  - HYPOAESTHESIA [None]
  - ABDOMINAL PAIN [None]
  - DIARRHOEA [None]
